FAERS Safety Report 10305182 (Version 1)
Quarter: 2014Q3

REPORT INFORMATION
  Report Type: Spontaneous
  Country: IT (occurrence: None)
  Receive Date: 20140710
  Receipt Date: 20140710
  Transmission Date: 20150326
  Serious: Yes (Hospitalization)
  Sender: FDA-Public Use
  Company Number: 2421762

PATIENT
  Age: 58 Year
  Sex: Male
  Weight: 85 kg

DRUGS (1)
  1. MEROPENEM. [Suspect]
     Active Substance: MEROPENEM
     Indication: ANTIBIOTIC PROPHYLAXIS
     Dosage: 1 DAY??(NOT OTHERWISE SPECIFIED)??
     Route: 042
     Dates: start: 20140617, end: 20140617

REACTIONS (3)
  - Bronchospasm [None]
  - Hyperventilation [None]
  - Rash [None]

NARRATIVE: CASE EVENT DATE: 20140617
